FAERS Safety Report 20071508 (Version 5)
Quarter: 2022Q2

REPORT INFORMATION
  Report Type: Report from Study
  Country: US (occurrence: US)
  Receive Date: 20211115
  Receipt Date: 20220504
  Transmission Date: 20220721
  Serious: No
  Sender: FDA-Public Use
  Company Number: US-NOVARTISTESTPH-NVSC2021US260958

PATIENT
  Age: 65 Year
  Sex: Male

DRUGS (3)
  1. ENTRESTO [Suspect]
     Active Substance: SACUBITRIL\VALSARTAN
     Indication: Product used for unknown indication
     Dosage: UNK, BID
     Route: 048
     Dates: start: 202109
  2. METOPROLOL [Suspect]
     Active Substance: METOPROLOL
     Indication: Product used for unknown indication
     Route: 065
  3. FARXIGA [Concomitant]
     Active Substance: DAPAGLIFLOZIN PROPANEDIOL
     Indication: Product used for unknown indication
     Route: 065

REACTIONS (8)
  - Peripheral swelling [Recovering/Resolving]
  - Respiration abnormal [Unknown]
  - Weight decreased [Unknown]
  - Gait disturbance [Unknown]
  - Joint effusion [Unknown]
  - Pain in extremity [Unknown]
  - Arthropathy [Unknown]
  - Arthritis [Unknown]

NARRATIVE: CASE EVENT DATE: 20220201
